FAERS Safety Report 9240301 (Version 1)
Quarter: 2013Q2

REPORT INFORMATION
  Report Type: Spontaneous
  Country: US (occurrence: None)
  Receive Date: 20130417
  Receipt Date: 20130417
  Transmission Date: 20140414
  Serious: Yes (Hospitalization)
  Sender: FDA-Public Use
  Company Number: 2013HINLIT0078

PATIENT
  Age: 60 Year
  Sex: Male

DRUGS (3)
  1. ESCITALOPRAM (ESCITALOPRAM) [Suspect]
     Indication: DEPRESSION
     Dosage: 20 MG/DAY
     Route: 048
  2. METHYLTHIONINIUM CHLORIDE [Suspect]
     Indication: VASOPLEGIA SYNDROME
     Route: 040
  3. TRAZODONE (TRAZODONE) [Suspect]
     Indication: DEPRESSION
     Dosage: (BED TIME)

REACTIONS (1)
  - Serotonin syndrome [None]
